FAERS Safety Report 6187937-0 (Version None)
Quarter: 2009Q2

REPORT INFORMATION
  Report Type: 
  Country: None (occurrence: None)
  Receive Date: 20090513
  Receipt Date: 20090507
  Transmission Date: 20091009
  Serious: Yes (Life-Threatening, Hospitalization)
  Sender: FDA-Public Use
  Company Number: IL-MERCK-0903ISR00003

PATIENT
  Age: 44 Year
  Sex: Female

DRUGS (12)
  1. SINGULAIR [Suspect]
     Indication: URTICARIA
     Route: 048
     Dates: start: 20080701, end: 20081001
  2. SINGULAIR [Suspect]
     Route: 048
  3. HYDROXYCHLOROQUINE SULFATE [Concomitant]
     Route: 048
  4. HYDROXYCHLOROQUINE SULFATE [Concomitant]
     Route: 048
  5. FOLIC ACID [Concomitant]
     Route: 048
  6. TRAMADOL HYDROCHLORIDE [Concomitant]
     Route: 048
  7. CALCIUM (UNSPECIFIED) [Concomitant]
     Route: 048
  8. OMEPRAZOLE [Concomitant]
     Route: 048
  9. LORAZEPAM [Concomitant]
     Route: 048
  10. LAMOTRIGINE [Concomitant]
     Route: 048
  11. PERPHENAZINE [Concomitant]
     Route: 048
  12. QUETIAPINE FUMARATE [Concomitant]
     Route: 065

REACTIONS (5)
  - DYSPNOEA [None]
  - OFF LABEL USE [None]
  - PLEURAL EFFUSION [None]
  - RHEUMATOID ARTHRITIS [None]
  - WEIGHT INCREASED [None]
